FAERS Safety Report 8616781-7 (Version None)
Quarter: 2012Q3

REPORT INFORMATION
  Report Type: 
  Country: None (occurrence: None)
  Receive Date: 20120823
  Receipt Date: 20120807
  Transmission Date: 20120928
  Serious: No
  Sender: FDA-Public Use
  Company Number: US-009507513-1207USA010824

PATIENT

DRUGS (2)
  1. INVANZ [Suspect]
     Indication: OSTEOMYELITIS
     Dosage: 1 G, QD
     Route: 042
     Dates: start: 20120701
  2. VANCOMYCIN [Concomitant]
     Dosage: 1.75 G, BID
     Route: 042
     Dates: start: 20120701

REACTIONS (1)
  - INAPPROPRIATE SCHEDULE OF DRUG ADMINISTRATION [None]
